FAERS Safety Report 8187029-5 (Version None)
Quarter: 2012Q1

REPORT INFORMATION
  Report Type: 
  Country: None (occurrence: None)
  Receive Date: 20120301
  Receipt Date: 20120223
  Transmission Date: 20120608
  Serious: Yes (Hospitalization, Other)
  Sender: FDA-Public Use
  Company Number: 2008-180467-NL

PATIENT
  Age: 44 Year
  Sex: Female
  Weight: 72.6 kg

DRUGS (1)
  1. NUVARING [Suspect]
     Indication: MENSTRUATION IRREGULAR
     Dosage: 1 DF;
     Dates: start: 20040426, end: 20040712

REACTIONS (36)
  - NECK MASS [None]
  - BLOOD PROLACTIN INCREASED [None]
  - BLOOD FOLLICLE STIMULATING HORMONE INCREASED [None]
  - NAUSEA [None]
  - HEADACHE [None]
  - SUPERIOR SAGITTAL SINUS THROMBOSIS [None]
  - INTRAOCULAR PRESSURE INCREASED [None]
  - LACRIMATION INCREASED [None]
  - TENDONITIS [None]
  - HYDRONEPHROSIS [None]
  - URINARY TRACT INFECTION [None]
  - VOMITING [None]
  - BLOOD LUTEINISING HORMONE INCREASED [None]
  - HUMAN CHORIONIC GONADOTROPIN INCREASED [None]
  - INTERNATIONAL NORMALISED RATIO DECREASED [None]
  - PAIN IN EXTREMITY [None]
  - HYPERCOAGULATION [None]
  - ANEURYSM [None]
  - VAGINAL HAEMORRHAGE [None]
  - HAEMATOMA [None]
  - PARAESTHESIA [None]
  - ANAEMIA [None]
  - NEPHROLITHIASIS [None]
  - HEPATIC STEATOSIS [None]
  - VISUAL IMPAIRMENT [None]
  - GRAND MAL CONVULSION [None]
  - HYPOTHALAMO-PITUITARY DISORDER [None]
  - HYPOTHYROIDISM [None]
  - COGNITIVE DISORDER [None]
  - PNEUMONIA [None]
  - GASTROOESOPHAGEAL REFLUX DISEASE [None]
  - HYPERTENSION [None]
  - SUBDURAL HAEMATOMA [None]
  - UTERINE LEIOMYOMA [None]
  - FRUSTRATION [None]
  - DEPRESSION [None]
